FAERS Safety Report 14740717 (Version 3)
Quarter: 2018Q2

REPORT INFORMATION
  Report Type: Report from Study
  Country: US (occurrence: US)
  Receive Date: 20180410
  Receipt Date: 20180622
  Transmission Date: 20180711
  Serious: Yes (Hospitalization)
  Sender: FDA-Public Use
  Company Number: US-EISAI MEDICAL RESEARCH-EC-2018-037676

PATIENT
  Age: 30 Year
  Sex: Female
  Weight: 68 kg

DRUGS (10)
  1. LENVATINIB [Suspect]
     Active Substance: LENVATINIB
     Route: 048
     Dates: start: 20180423, end: 20180513
  2. VENLAFAXINE [Concomitant]
     Active Substance: VENLAFAXINE HYDROCHLORIDE
  3. MORPHINE [Concomitant]
     Active Substance: MORPHINE
  4. NORCO [Concomitant]
     Active Substance: ACETAMINOPHEN\HYDROCODONE BITARTRATE
  5. RIVAROXABAN [Concomitant]
     Active Substance: RIVAROXABAN
  6. FLUTICASONE. [Concomitant]
     Active Substance: FLUTICASONE
  7. LENVATINIB [Suspect]
     Active Substance: LENVATINIB
     Indication: BREAST CANCER METASTATIC
     Route: 048
     Dates: start: 20171202, end: 20180329
  8. IBUPROFEN. [Concomitant]
     Active Substance: IBUPROFEN
  9. ERIBULIN [Suspect]
     Active Substance: ERIBULIN
     Indication: BREAST CANCER METASTATIC
     Route: 041
     Dates: start: 20171201, end: 2018
  10. ONDANSETRON [Concomitant]
     Active Substance: ONDANSETRON

REACTIONS (2)
  - Neutropenic colitis [Recovered/Resolved]
  - Febrile neutropenia [Recovered/Resolved]

NARRATIVE: CASE EVENT DATE: 20180330
